FAERS Safety Report 8383736-X (Version None)
Quarter: 2012Q2

REPORT INFORMATION
  Report Type: 
  Country: None (occurrence: None)
  Receive Date: 20120524
  Receipt Date: 20120127
  Transmission Date: 20120825
  Serious: Yes (Death)
  Sender: FDA-Public Use
  Company Number: US-ROCHE-1027294

PATIENT
  Sex: Male
  Weight: 95.681 kg

DRUGS (12)
  1. LASIX [Concomitant]
     Indication: OEDEMA
     Route: 048
  2. AMITRIPTYLINE HCL [Concomitant]
  3. HYDROXYZINE [Concomitant]
  4. NEUPOGEN [Concomitant]
  5. DOXYCYCLINE [Concomitant]
  6. ALPRAZOLAM [Concomitant]
  7. PEGASYS [Suspect]
     Indication: HEPATITIS C
     Dosage: DOSE: 180
     Route: 058
     Dates: start: 20110801
  8. COPEGUS [Suspect]
     Indication: HEPATITIS C
     Route: 048
     Dates: start: 20110801
  9. LACTULOSE [Concomitant]
     Indication: HEPATIC ENCEPHALOPATHY
     Route: 048
  10. INCIVEK [Suspect]
     Indication: HEPATITIS C
     Route: 048
     Dates: start: 20110812, end: 20111107
  11. XIFAXAN [Concomitant]
     Indication: HEPATIC ENCEPHALOPATHY
     Route: 048
  12. PROMETHAZINE [Concomitant]

REACTIONS (3)
  - SHOCK [None]
  - LEUKAEMIA [None]
  - RASH [None]
